FAERS Safety Report 6102919-2 (Version None)
Quarter: 2009Q1

REPORT INFORMATION
  Report Type: 
  Country: None (occurrence: None)
  Receive Date: 20090303
  Receipt Date: 20090303
  Transmission Date: 20090719
  Serious: Yes (Disabling)
  Sender: FDA-Public Use
  Company Number: None

PATIENT
  Age: 29 Year
  Sex: Female
  Weight: 68.0396 kg

DRUGS (2)
  1. CIPRO [Suspect]
     Indication: GASTROENTERITIS BACTERIAL
     Dosage: 1 TABLET TWICE A DAY PO
     Route: 048
     Dates: start: 20090209, end: 20090214
  2. CIPRO [Suspect]
     Indication: GASTROENTERITIS VIRAL
     Dosage: 1 TABLET TWICE A DAY PO
     Route: 048
     Dates: start: 20090209, end: 20090214

REACTIONS (9)
  - CONTUSION [None]
  - ERYTHEMA [None]
  - GAIT DISTURBANCE [None]
  - IMPAIRED DRIVING ABILITY [None]
  - JOINT SWELLING [None]
  - TENDON PAIN [None]
  - TENDON RUPTURE [None]
  - URTICARIA [None]
  - WALKING AID USER [None]
